FAERS Safety Report 14746811 (Version 1)
Quarter: 2018Q2

REPORT INFORMATION
  Report Type: Spontaneous
  Country: IT (occurrence: IT)
  Receive Date: 20180411
  Receipt Date: 20180411
  Transmission Date: 20180711
  Serious: Yes (Death, Hospitalization, Other)
  Sender: FDA-Public Use
  Company Number: IT-MYLANLABS-2018M1022352

PATIENT
  Age: 27 Year

DRUGS (2)
  1. MELPHALAN. [Suspect]
     Active Substance: MELPHALAN
     Indication: BONE MARROW CONDITIONING REGIMEN
     Route: 042
  2. BUSULFAN. [Suspect]
     Active Substance: BUSULFAN
     Indication: EWING^S SARCOMA
     Route: 042

REACTIONS (3)
  - Venoocclusive liver disease [Fatal]
  - Multiple organ dysfunction syndrome [Fatal]
  - Off label use [Fatal]
